FAERS Safety Report 5055921-6 (Version None)
Quarter: 2006Q3

REPORT INFORMATION
  Report Type: 
  Country: None (occurrence: None)
  Receive Date: 20060717
  Receipt Date: 20060717
  Transmission Date: 20061208
  Serious: No
  Sender: FDA-Public Use
  Company Number: None

PATIENT
  Age: 21 Year
  Sex: Male
  Weight: 95.2554 kg

DRUGS (7)
  1. NITRIOUS OXIDE   100% [Suspect]
     Dosage: 100%   DAILY   PO
     Route: 048
     Dates: start: 19981201, end: 20060714
  2. ANESTHESIA AGENTS   100%   ABBOTT BAXTER [Suspect]
     Dosage: 100%  DAILY  PO
     Route: 048
     Dates: start: 19981201, end: 20060714
  3. NITRIOUS OXIDE [Concomitant]
  4. DESFLURANE [Concomitant]
  5. SEVOFLURANE [Concomitant]
  6. ISOFLURANE [Concomitant]
  7. HALOTHANE [Concomitant]

REACTIONS (1)
  - OCCUPATIONAL EXPOSURE TO AIR CONTAMINANTS [None]
